FAERS Safety Report 6531313-5 (Version None)
Quarter: 2010Q1

REPORT INFORMATION
  Report Type: 
  Country: None (occurrence: None)
  Receive Date: 20100108
  Receipt Date: 20100104
  Transmission Date: 20100710
  Serious: Yes (Other)
  Sender: FDA-Public Use
  Company Number: FR-ASTRAZENECA-2010SE00221

PATIENT
  Age: 75 Year
  Sex: Female

DRUGS (2)
  1. CANDESARTAN CILEXETIL/HYDROCHLOROTHIAZIDE (ATACAND HCT) [Suspect]
     Indication: HYPERTENSION
     Dosage: 16/12.5 MG/DAY
     Route: 048
     Dates: start: 20091229
  2. FUROSEMIDE [Suspect]
     Indication: HYPERTENSION
     Route: 048
     Dates: end: 20100104

REACTIONS (1)
  - CONFUSIONAL STATE [None]
